FAERS Safety Report 11811855 (Version 1)
Quarter: 2015Q4

REPORT INFORMATION
  Report Type: Spontaneous
  Country: US (occurrence: US)
  Receive Date: 20151208
  Receipt Date: 20151208
  Transmission Date: 20160305
  Serious: No
  Sender: FDA-Public Use
  Company Number: US-BAYER-2015-484230

PATIENT
  Age: 71 Year
  Sex: Male
  Weight: 90.7 kg

DRUGS (2)
  1. BAYER LOW DOSE [Concomitant]
     Active Substance: ASPIRIN
  2. CLARITIN [Suspect]
     Active Substance: LORATADINE
     Indication: SEASONAL ALLERGY
     Dosage: 1 DF, PRN
     Route: 048
     Dates: start: 2014

REACTIONS (5)
  - Drug ineffective [None]
  - Rhinorrhoea [None]
  - Sneezing [None]
  - Product use issue [None]
  - Lacrimation increased [None]
